FAERS Safety Report 6644678-0 (Version None)
Quarter: 2010Q1

REPORT INFORMATION
  Report Type: 
  Country: None (occurrence: None)
  Receive Date: 20100318
  Receipt Date: 20100318
  Transmission Date: 20100710
  Serious: Yes (Hospitalization)
  Sender: FDA-Public Use
  Company Number: None

PATIENT
  Age: 84 Year
  Sex: Male
  Weight: 89 kg

DRUGS (1)
  1. CEPHALEXIN [Suspect]
     Indication: CELLULITIS
     Dosage: 500 MG QID PO
     Route: 048
     Dates: start: 20090729, end: 20090808

REACTIONS (6)
  - CLOSTRIDIUM TEST POSITIVE [None]
  - DEHYDRATION [None]
  - DIARRHOEA [None]
  - HYPOPHAGIA [None]
  - HYPOTENSION [None]
  - RENAL FAILURE ACUTE [None]
